FAERS Safety Report 10039164 (Version 2)
Quarter: 2014Q2

REPORT INFORMATION
  Report Type: Spontaneous
  Country: CH (occurrence: CH)
  Receive Date: 20140326
  Receipt Date: 20140408
  Transmission Date: 20141212
  Serious: Yes (Hospitalization, Other)
  Sender: FDA-Public Use
  Company Number: PHHY2014CH035206

PATIENT
  Sex: Female

DRUGS (4)
  1. TASIGNA [Suspect]
     Dosage: 300 MG, BID
     Dates: start: 20131217
  2. AMOXICILLIN/CLAVULANIC ACID [Concomitant]
     Indication: INFECTION
     Dosage: 1 G, TID
     Route: 048
     Dates: start: 20140323
  3. CANDESARTAN [Concomitant]
     Indication: HYPERTENSION
     Dosage: 16 MG, DAILY
     Route: 048
  4. OLFEN [Concomitant]
     Indication: PAIN
     Dosage: 50 MG, DAILY
     Route: 048

REACTIONS (2)
  - Post procedural infection [Not Recovered/Not Resolved]
  - Abscess [Not Recovered/Not Resolved]
